FAERS Safety Report 9292986 (Version 2)
Quarter: 2013Q3

REPORT INFORMATION
  Report Type: Spontaneous
  Country: US (occurrence: None)
  Receive Date: 20130513
  Receipt Date: 20130916
  Transmission Date: 20140515
  Serious: Yes (Hospitalization)
  Sender: FDA-Public Use
  Company Number: 2013-0742

PATIENT
  Age: 66 Year
  Sex: Female
  Weight: 76.1 kg

DRUGS (3)
  1. CARFILZOMIB [Suspect]
     Indication: PLASMA CELL MYELOMA
     Dosage: 37 MG, CYCLE 1 DAY 1, IV
     Route: 042
     Dates: start: 20130417, end: 20130417
  2. POMALIDOMIDE (POMALIDOMIDE) (POMALIDOMIDE0 [Concomitant]
  3. DEXAMETHASONE (DEXAMETHASONE) (DEXAMETHASONE) [Concomitant]

REACTIONS (12)
  - Confusional state [None]
  - Aphasia [None]
  - Mental status changes [None]
  - Delirium [None]
  - Tumour lysis syndrome [None]
  - Blood lactate dehydrogenase increased [None]
  - Blood chloride increased [None]
  - Carbon dioxide decreased [None]
  - Protein total increased [None]
  - Aspartate aminotransferase increased [None]
  - Toxicity to various agents [None]
  - Infection [None]
